FAERS Safety Report 20551843 (Version 5)
Quarter: 2022Q4

REPORT INFORMATION
  Report Type: Report from Study
  Country: US (occurrence: US)
  Receive Date: 20220304
  Receipt Date: 20221115
  Transmission Date: 20230113
  Serious: Yes (Hospitalization)
  Sender: FDA-Public Use
  Company Number: US-GW PHARMA-202202USGW00955

PATIENT
  Age: 6 Year
  Sex: Male
  Weight: 18.141 kg

DRUGS (3)
  1. EPIDIOLEX [Suspect]
     Active Substance: CANNABIDIOL
     Indication: Lennox-Gastaut syndrome
     Dosage: UNK
     Dates: start: 20220324
  2. EPIDIOLEX [Suspect]
     Active Substance: CANNABIDIOL
     Dosage: 1.5 MILLILITER, BID VIA G-TUBE
     Dates: start: 20220416
  3. EPIDIOLEX [Suspect]
     Active Substance: CANNABIDIOL
     Dosage: 2.4 MILLILITER VIA G-TUBE
     Dates: start: 202210

REACTIONS (3)
  - Hospitalisation [Unknown]
  - Drooling [Unknown]
  - Emergency care [Unknown]

NARRATIVE: CASE EVENT DATE: 20220622
